FAERS Safety Report 13034417 (Version 1)
Quarter: 2016Q4

REPORT INFORMATION
  Report Type: Spontaneous
  Country: US (occurrence: US)
  Receive Date: 20161216
  Receipt Date: 20161216
  Transmission Date: 20170207
  Serious: No
  Sender: FDA-Public Use
  Company Number: US-JNJFOC-20161126609

PATIENT
  Age: 3 Decade
  Sex: Male
  Weight: 63.5 kg

DRUGS (5)
  1. MENS ROGAINE EXTRA STRENGTH [Suspect]
     Active Substance: MINOXIDIL
     Route: 061
  2. BIOTIN [Concomitant]
     Active Substance: BIOTIN
     Indication: HAIR GROWTH ABNORMAL
     Route: 065
  3. CENTRUM [Concomitant]
     Active Substance: VITAMINS
     Indication: ROUTINE HEALTH MAINTENANCE
     Dosage: 5MONTHS
     Route: 065
  4. IRON [Concomitant]
     Active Substance: IRON
     Indication: HAIR GROWTH ABNORMAL
     Dosage: 5 MONTHS
     Route: 065
  5. MENS ROGAINE EXTRA STRENGTH [Suspect]
     Active Substance: MINOXIDIL
     Indication: ALOPECIA
     Dosage: ALMOST A CAPFULL
     Route: 061

REACTIONS (4)
  - Dandruff [Not Recovered/Not Resolved]
  - Pruritus [Not Recovered/Not Resolved]
  - Overdose [Not Recovered/Not Resolved]
  - Alopecia [Not Recovered/Not Resolved]
